FAERS Safety Report 18433417 (Version 2)
Quarter: 2021Q1

REPORT INFORMATION
  Report Type: Report from Study
  Country: MX (occurrence: MX)
  Receive Date: 20201027
  Receipt Date: 20210306
  Transmission Date: 20210419
  Serious: Yes (Other)
  Sender: FDA-Public Use
  Company Number: NVSC2020MX286500

PATIENT
  Age: 72 Year
  Sex: Female
  Weight: 56 kg

DRUGS (2)
  1. ENTRESTO [Suspect]
     Active Substance: SACUBITRIL\VALSARTAN
     Indication: CARDIAC FAILURE
     Dosage: 1 DF, QD(TWO YEARS AND A HALF YEARS AGO)
     Route: 048
     Dates: start: 201808
  2. ENTRESTO [Suspect]
     Active Substance: SACUBITRIL\VALSARTAN
     Dosage: 1 DF, BID (TWO YEARS AND A HALF YEARS AGO)
     Route: 048

REACTIONS (11)
  - Spinal column injury [Recovering/Resolving]
  - Discomfort [Unknown]
  - Fear [Recovered/Resolved]
  - Choking [Recovered/Resolved]
  - Contusion [Recovering/Resolving]
  - Dyspnoea [Recovered/Resolved]
  - Nasal vestibulitis [Recovering/Resolving]
  - Gait disturbance [Recovering/Resolving]
  - Inappropriate schedule of product administration [Unknown]
  - Swelling face [Recovering/Resolving]
  - Fall [Recovering/Resolving]

NARRATIVE: CASE EVENT DATE: 202010
